FAERS Safety Report 12375888 (Version 4)
Quarter: 2016Q4

REPORT INFORMATION
  Report Type: Spontaneous
  Country: JP (occurrence: JP)
  Receive Date: 20160517
  Receipt Date: 20161024
  Transmission Date: 20170207
  Serious: Yes (Hospitalization, Other)
  Sender: FDA-Public Use
  Company Number: JP-GLAXOSMITHKLINE-JP2016JPN053006

PATIENT
  Age: 97 Year
  Sex: Female
  Weight: 40 kg

DRUGS (1)
  1. VALTREX [Suspect]
     Active Substance: VALACYCLOVIR HYDROCHLORIDE
     Indication: HERPES ZOSTER
     Dosage: 1000 MG, TID
     Route: 048
     Dates: start: 20160410, end: 20160415

REACTIONS (11)
  - Toxic encephalopathy [Recovering/Resolving]
  - Acute kidney injury [Recovering/Resolving]
  - Renal impairment [Recovering/Resolving]
  - Altered state of consciousness [Recovering/Resolving]
  - Decreased appetite [Unknown]
  - Delirium [Recovering/Resolving]
  - Psychiatric symptom [Recovering/Resolving]
  - Urine output decreased [Recovered/Resolved]
  - Restlessness [Recovering/Resolving]
  - Somnolence [Recovering/Resolving]
  - Depressed level of consciousness [Recovering/Resolving]

NARRATIVE: CASE EVENT DATE: 201604
